FAERS Safety Report 7810746-0 (Version None)
Quarter: 2011Q4

REPORT INFORMATION
  Report Type: 
  Country: None (occurrence: None)
  Receive Date: 20111006
  Receipt Date: 20110829
  Transmission Date: 20120403
  Serious: Yes (Death)
  Sender: FDA-Public Use
  Company Number: US-2011-10380

PATIENT
  Age: 85 Year
  Sex: Male
  Weight: 68 kg

DRUGS (4)
  1. LASIX [Concomitant]
  2. SAMSCA [Suspect]
     Indication: RENAL FAILURE
     Dosage: 15 MG MILLIGRAM(S), QD, ORAL
     Route: 048
     Dates: start: 20101201
  3. SAMSCA [Suspect]
     Indication: CARDIAC FAILURE
     Dosage: 15 MG MILLIGRAM(S), QD, ORAL
     Route: 048
     Dates: start: 20101201
  4. ANTIVERT [Concomitant]

REACTIONS (10)
  - EXCORIATION [None]
  - EYE DISORDER [None]
  - FATIGUE [None]
  - DIZZINESS [None]
  - FALL [None]
  - ABDOMINAL DISTENSION [None]
  - JOINT STIFFNESS [None]
  - ARTHRALGIA [None]
  - MUSCULAR WEAKNESS [None]
  - MUSCULOSKELETAL STIFFNESS [None]
